FAERS Safety Report 15918236 (Version 1)
Quarter: 2019Q1

REPORT INFORMATION
  Report Type: Spontaneous
  Country: US (occurrence: US)
  Receive Date: 20190205
  Receipt Date: 20190205
  Transmission Date: 20190417
  Serious: No
  Sender: FDA-Public Use
  Company Number: US-TEVA-2018-US-954556

PATIENT
  Age: 33 Year
  Sex: Female

DRUGS (3)
  1. VITAMIN B COMPLEX [Suspect]
     Active Substance: CYANOCOBALAMIN\DEXPANTHENOL\NIACINAMIDE\PYRIDOXINE HYDROCHLORIDE\RIBOFLAVIN 5^-PHOSPHATE SODIUM\THIAMINE HYDROCHLORIDE\VITAMIN B COMPLEX
     Indication: INFERTILITY
     Route: 065
  2. 5-METHYL TETRAHYDROFOLATE [Suspect]
     Active Substance: LEVOMEFOLIC ACID
     Indication: INFERTILITY
     Dosage: 800 MICROGRAM DAILY;
     Route: 065
  3. CHELATED ZINC (ZINC) [Suspect]
     Active Substance: ZINC
     Indication: INFERTILITY
     Route: 065

REACTIONS (1)
  - Maternal exposure during pregnancy [Unknown]
